FAERS Safety Report 6749489-3 (Version None)
Quarter: 2010Q2

REPORT INFORMATION
  Report Type: 
  Country: None (occurrence: None)
  Receive Date: 20100601
  Receipt Date: 20100520
  Transmission Date: 20101027
  Serious: Yes (Hospitalization)
  Sender: FDA-Public Use
  Company Number: IT-ASTRAZENECA-2010SE23516

PATIENT
  Sex: Male

DRUGS (1)
  1. ATENOLOL AND CHLORTHALIDONE [Suspect]
     Route: 048

REACTIONS (3)
  - ANAEMIA [None]
  - CONFUSIONAL STATE [None]
  - RENAL FAILURE ACUTE [None]
